FAERS Safety Report 15936506 (Version 2)
Quarter: 2019Q1

REPORT INFORMATION
  Report Type: Spontaneous
  Country: FR (occurrence: FR)
  Receive Date: 20190208
  Receipt Date: 20190312
  Transmission Date: 20190417
  Serious: Yes (Life-Threatening, Hospitalization)
  Sender: FDA-Public Use
  Company Number: FR-SA-2019SA032865

PATIENT
  Age: 76 Year
  Sex: Female
  Weight: 67.7 kg

DRUGS (13)
  1. PREDNISOLONE. [Concomitant]
     Active Substance: PREDNISOLONE
  2. DAFALGAN CODEINE [Suspect]
     Active Substance: ACETAMINOPHEN\CODEINE PHOSPHATE
     Indication: ANALGESIC INTERVENTION SUPPORTIVE THERAPY
     Dosage: 2 DF, QD
     Route: 048
     Dates: end: 20181225
  3. ELIQUIS [Suspect]
     Active Substance: APIXABAN
     Indication: PAROXYSMAL ARRHYTHMIA
     Dosage: UNK
     Route: 048
     Dates: start: 20181206, end: 20181206
  4. KALEORID [Concomitant]
     Active Substance: POTASSIUM CHLORIDE
  5. VAXIGRIPTETRA [Suspect]
     Active Substance: INFLUENZA VIRUS VACCINE QUADRIVALENT TYPE A+B
     Indication: IMMUNISATION
     Dosage: 1 DF
     Route: 065
     Dates: start: 201811, end: 201811
  6. SIFROL [Concomitant]
     Active Substance: PRAMIPEXOLE
     Indication: RESTLESS LEGS SYNDROME
     Dosage: 0.18 MG, QD
     Route: 048
     Dates: start: 20181225, end: 20181225
  7. SIFROL [Concomitant]
     Active Substance: PRAMIPEXOLE
     Dosage: UNK
     Dates: start: 20190111
  8. CACIT VITAMINE D3 [Suspect]
     Active Substance: CALCIUM CARBONATE\CHOLECALCIFEROL
     Indication: HYPOVITAMINOSIS
     Dosage: 3 DF
     Route: 048
     Dates: end: 20181225
  9. NIMODIPINE. [Concomitant]
     Active Substance: NIMODIPINE
     Indication: VASOSPASM
     Dosage: UNK
     Dates: end: 20190114
  10. PARACETAMOL [Concomitant]
     Active Substance: ACETAMINOPHEN
  11. TRANSULOSE [Suspect]
     Active Substance: LACTULOSE\MINERAL OIL\PARAFFIN
     Indication: CONSTIPATION
     Dosage: 1 DF, QD
     Route: 048
     Dates: end: 20181225
  12. METHYLPREDNISOLONE. [Concomitant]
     Active Substance: METHYLPREDNISOLONE
     Dosage: UNK
  13. IRBESARTAN. [Suspect]
     Active Substance: IRBESARTAN
     Indication: HYPERTENSION
     Dosage: 300 MG, QD
     Route: 048
     Dates: end: 20181225

REACTIONS (2)
  - Thrombocytopenia [Recovering/Resolving]
  - Meningorrhagia [Recovered/Resolved]

NARRATIVE: CASE EVENT DATE: 20181206
